FAERS Safety Report 19947530 (Version 1)
Quarter: 2021Q4

REPORT INFORMATION
  Report Type: Spontaneous
  Country: US (occurrence: US)
  Receive Date: 20211013
  Receipt Date: 20211013
  Transmission Date: 20220303
  Serious: No
  Sender: FDA-Public Use
  Company Number: US-JNJFOC-20211004303

PATIENT
  Age: 77 Year
  Sex: Female

DRUGS (1)
  1. WOMENS ROGAINE [Suspect]
     Active Substance: MINOXIDIL
     Indication: Alopecia
     Dosage: DOSE: SMALL AMOUNT
     Route: 061

REACTIONS (2)
  - Alopecia [Unknown]
  - Incorrect dose administered [Unknown]
